FAERS Safety Report 6174006-9 (Version None)
Quarter: 2009Q2

REPORT INFORMATION
  Report Type: 
  Country: None (occurrence: None)
  Receive Date: 20090430
  Receipt Date: 20081211
  Transmission Date: 20091009
  Serious: No
  Sender: FDA-Public Use
  Company Number: US-ASTRAZENECA-2007UW06023

PATIENT
  Age: 62 Year
  Sex: Female
  Weight: 43.1 kg

DRUGS (7)
  1. NEXIUM [Suspect]
     Indication: REFLUX GASTRITIS
     Route: 048
  2. NEXIUM [Interacting]
     Indication: GASTRIC ULCER
     Route: 048
  3. CLONAZEPAM [Interacting]
     Indication: ANXIETY
     Route: 048
     Dates: start: 20080701
  4. XANAX [Concomitant]
  5. FLAGYL [Concomitant]
  6. OLANZAPINE [Concomitant]
  7. PAROXETINE MESILATE [Concomitant]

REACTIONS (5)
  - ASTHENIA [None]
  - DRUG INTERACTION [None]
  - FATIGUE [None]
  - SALIVARY HYPERSECRETION [None]
  - WEIGHT DECREASED [None]
